FAERS Safety Report 18695032 (Version 2)
Quarter: 2021Q1

REPORT INFORMATION
  Report Type: Report from Study
  Country: CN (occurrence: CN)
  Receive Date: 20210104
  Receipt Date: 20210210
  Transmission Date: 20210419
  Serious: Yes (Other)
  Sender: FDA-Public Use
  Company Number: CN-BRISTOL-MYERS SQUIBB COMPANY-BMS-2020-112810

PATIENT
  Age: 57 Year
  Sex: Male

DRUGS (1)
  1. NIVOLUMAB [Suspect]
     Active Substance: NIVOLUMAB
     Indication: SQUAMOUS CELL CARCINOMA OF HEAD AND NECK
     Dosage: 180 MILLIGRAM, Q2WK
     Route: 041
     Dates: start: 20200428

REACTIONS (2)
  - Immune-mediated enterocolitis [Recovering/Resolving]
  - Immune-mediated pneumonitis [Unknown]

NARRATIVE: CASE EVENT DATE: 20201206
